FAERS Safety Report 4566488-0 (Version None)
Quarter: 2005Q1

REPORT INFORMATION
  Report Type: 
  Country: None (occurrence: None)
  Receive Date: 20050201
  Receipt Date: 20050124
  Transmission Date: 20050727
  Serious: Yes (Hospitalization, Other)
  Sender: FDA-Public Use
  Company Number: PHFR2005GB00694

PATIENT
  Sex: Female
  Weight: 91 kg

DRUGS (1)
  1. DICLOFENAC [Suspect]
     Indication: NECK PAIN
     Route: 048

REACTIONS (2)
  - HEPATITIS C [None]
  - HEPATITIS CHOLESTATIC [None]
